FAERS Safety Report 10704422 (Version 1)
Quarter: 2015Q1

REPORT INFORMATION
  Report Type: Spontaneous
  Country: IE (occurrence: IE)
  Receive Date: 20150112
  Receipt Date: 20150112
  Transmission Date: 20150721
  Serious: Yes (Other)
  Sender: FDA-Public Use
  Company Number: PHHY2015IE000995

PATIENT
  Sex: Male

DRUGS (2)
  1. CLINDAMYCIN [Suspect]
     Active Substance: CLINDAMYCIN\CLINDAMYCIN PHOSPHATE
     Indication: PRODUCT USED FOR UNKNOWN INDICATION
     Route: 065
  2. FLUCLOXACILLIN [Suspect]
     Active Substance: FLUCLOXACILLIN
     Indication: ARTHRITIS BACTERIAL
     Route: 065

REACTIONS (10)
  - Hepatic function abnormal [Unknown]
  - Pyrexia [Recovering/Resolving]
  - Purpura [Recovering/Resolving]
  - Eczema [Recovering/Resolving]
  - Renal impairment [Recovering/Resolving]
  - Lymphocytic infiltration [Recovering/Resolving]
  - Swelling face [Recovering/Resolving]
  - Drug eruption [Recovering/Resolving]
  - Rash pustular [Recovering/Resolving]
  - Tachycardia [Unknown]
